FAERS Safety Report 10541336 (Version 1)
Quarter: 2014Q4

REPORT INFORMATION
  Report Type: Spontaneous
  Country: US (occurrence: US)
  Receive Date: 20141024
  Receipt Date: 20141024
  Transmission Date: 20150529
  Serious: Yes (Congenital Anomaly, Other)
  Sender: FDA-Public Use
  Company Number: US-ABBVIE-14P-163-1298249-00

PATIENT
  Sex: Female

DRUGS (1)
  1. DEPAKOTE [Suspect]
     Active Substance: DIVALPROEX SODIUM
     Indication: MATERNAL EXPOSURE TIMING UNSPECIFIED
     Route: 064

REACTIONS (20)
  - Anhedonia [Unknown]
  - Developmental delay [Unknown]
  - Dysarthria [Unknown]
  - Congenital nose malformation [Unknown]
  - Anger [Unknown]
  - Abnormal behaviour [Unknown]
  - Injury [Unknown]
  - Mental impairment [Unknown]
  - Oppositional defiant disorder [Unknown]
  - Sensory loss [Unknown]
  - Pain [Unknown]
  - Illiteracy [Unknown]
  - Language disorder [Unknown]
  - Intentional self-injury [Unknown]
  - Dysmorphism [Unknown]
  - Asperger^s disorder [Unknown]
  - Attention deficit/hyperactivity disorder [Unknown]
  - Affective disorder [Unknown]
  - Skull malformation [Unknown]
  - Emotional distress [Unknown]
